FAERS Safety Report 14244220 (Version 5)
Quarter: 2018Q3

REPORT INFORMATION
  Report Type: Report from Study
  Country: US (occurrence: US)
  Receive Date: 20171201
  Receipt Date: 20180828
  Transmission Date: 20181010
  Serious: Yes (Other)
  Sender: FDA-Public Use
  Company Number: PHEH2017US038818

PATIENT
  Sex: Male

DRUGS (2)
  1. ASPIRIN. [Concomitant]
     Active Substance: ASPIRIN
     Indication: PRODUCT USED FOR UNKNOWN INDICATION
     Dosage: UNK
     Route: 065
  2. GILENYA [Suspect]
     Active Substance: FINGOLIMOD HYDROCHLORIDE
     Indication: MULTIPLE SCLEROSIS
     Dosage: 0.5 MG, QD
     Route: 048
     Dates: start: 20170914

REACTIONS (11)
  - Depression [Unknown]
  - Lower respiratory tract infection [Unknown]
  - Anxiety [Unknown]
  - Fatigue [Unknown]
  - Nervousness [Unknown]
  - Muscle spasms [Unknown]
  - Abdominal pain upper [Unknown]
  - Headache [Unknown]
  - Cough [Unknown]
  - Sinusitis [Unknown]
  - Diarrhoea [Unknown]
